FAERS Safety Report 8162148-8 (Version None)
Quarter: 2012Q1

REPORT INFORMATION
  Report Type: 
  Country: None (occurrence: None)
  Receive Date: 20120224
  Receipt Date: 20111020
  Transmission Date: 20120608
  Serious: No
  Sender: FDA-Public Use
  Company Number: US-BRISTOL-MYERS SQUIBB COMPANY-16033250

PATIENT
  Sex: Male

DRUGS (2)
  1. METFORMIN HCL [Suspect]
  2. VICTOZA [Suspect]
     Indication: DIABETES MELLITUS
     Route: 058

REACTIONS (6)
  - NAUSEA [None]
  - THROAT IRRITATION [None]
  - DYSPEPSIA [None]
  - ERUCTATION [None]
  - MASTICATION DISORDER [None]
  - DECREASED APPETITE [None]
